FAERS Safety Report 9486555 (Version 2)
Quarter: 2013Q3

REPORT INFORMATION
  Report Type: Spontaneous
  Country: DE (occurrence: DE)
  Receive Date: 20130829
  Receipt Date: 20130829
  Transmission Date: 20140515
  Serious: Yes (Other)
  Sender: FDA-Public Use
  Company Number: PHHY2013DE044437

PATIENT
  Age: 64 Year
  Sex: Male

DRUGS (2)
  1. SIGNIFOR [Suspect]
     Indication: PITUITARY TUMOUR BENIGN
     Dosage: UNK
     Route: 058
     Dates: start: 20120621, end: 20120821
  2. SIGNIFOR [Suspect]
     Indication: OFF LABEL USE

REACTIONS (3)
  - Diabetes mellitus [Unknown]
  - Hypertension [Unknown]
  - Drug ineffective [Unknown]
